FAERS Safety Report 22886546 (Version 2)
Quarter: 2023Q4

REPORT INFORMATION
  Report Type: Spontaneous
  Country: US (occurrence: US)
  Receive Date: 20230831
  Receipt Date: 20231113
  Transmission Date: 20240110
  Serious: Yes (Other)
  Sender: FDA-Public Use
  Company Number: US-JNJFOC-20230854723

PATIENT
  Sex: Male

DRUGS (1)
  1. RYBREVANT [Suspect]
     Active Substance: AMIVANTAMAB-VMJW
     Indication: Gene mutation
     Route: 042

REACTIONS (9)
  - Choking [Unknown]
  - Generalised oedema [Unknown]
  - Dyspnoea [Unknown]
  - Gait disturbance [Unknown]
  - Onychoclasis [Unknown]
  - Staphylococcal skin infection [Unknown]
  - Scar [Unknown]
  - Visual impairment [Unknown]
  - Off label use [Unknown]
